FAERS Safety Report 5929356-5 (Version None)
Quarter: 2008Q4

REPORT INFORMATION
  Report Type: 
  Country: None (occurrence: None)
  Receive Date: 20081024
  Receipt Date: 20081014
  Transmission Date: 20090506
  Serious: Yes (Life-Threatening, Hospitalization)
  Sender: FDA-Public Use
  Company Number: JP-ABBOTT-08P-087-0475609-00

PATIENT
  Sex: Female
  Weight: 56 kg

DRUGS (11)
  1. HUMIRA [Suspect]
     Indication: RHEUMATOID ARTHRITIS
     Route: 058
     Dates: start: 20080714, end: 20080714
  2. HUMIRA [Suspect]
     Route: 058
     Dates: start: 20080919
  3. PREDNISOLONE SODIUM PHOSPHATE [Concomitant]
     Indication: RHEUMATOID ARTHRITIS
     Route: 048
     Dates: start: 20080321
  4. ATORVASTATIN CALCIUM [Concomitant]
     Indication: LIPIDS ABNORMAL
     Route: 048
     Dates: start: 20031115
  5. ALLOPURINOL [Concomitant]
     Indication: HYPERURICAEMIA
     Route: 048
  6. SODIUM GUALENATE [Concomitant]
     Indication: GASTRITIS
     Route: 048
  7. VALSARTAN [Concomitant]
     Indication: HYPERTENSION
     Route: 048
     Dates: start: 20031115
  8. TICLOPIDINE HYDROCHLORIDE [Concomitant]
     Indication: AORTIC ANEURYSM
     Route: 048
  9. AMLODIPINE BESYLATE [Concomitant]
     Indication: HYPERTENSION
     Route: 048
     Dates: start: 20031115
  10. TEMOCAPRIL HYDROCHLORIDE [Concomitant]
     Indication: HYPERTENSION
     Route: 048
     Dates: start: 20031115
  11. DICYCLOMIN HYDROCHLORIDE, DRIED ALUMINUM HYDROSIDE GEL, MAGESIUM OXIDE [Concomitant]
     Indication: GASTRITIS
     Route: 048

REACTIONS (2)
  - AORTIC ANEURYSM [None]
  - ILEUS PARALYTIC [None]
